FAERS Safety Report 15029013 (Version 1)
Quarter: 2018Q2

REPORT INFORMATION
  Report Type: Spontaneous
  Country: US (occurrence: US)
  Receive Date: 20180619
  Receipt Date: 20180619
  Transmission Date: 20180711
  Serious: No
  Sender: FDA-Public Use
  Company Number: US-009507513-1805USA010272

PATIENT
  Age: 58 Year
  Sex: Female

DRUGS (3)
  1. SINEMET [Suspect]
     Active Substance: CARBIDOPA\LEVODOPA
     Indication: DOPA-RESPONSIVE DYSTONIA
     Dosage: 1 TABLET, BID
     Route: 048
  2. SINEMET [Suspect]
     Active Substance: CARBIDOPA\LEVODOPA
     Dosage: 1 TABLET, Q4H
     Route: 048
  3. SINEMET CR [Suspect]
     Active Substance: CARBIDOPA\LEVODOPA
     Indication: DOPA-RESPONSIVE DYSTONIA
     Dosage: 1 TABLET, TID
     Route: 048

REACTIONS (1)
  - Dyskinesia [Unknown]
